FAERS Safety Report 16203452 (Version 2)
Quarter: 2019Q2

REPORT INFORMATION
  Report Type: Spontaneous
  Country: US (occurrence: US)
  Receive Date: 20190416
  Receipt Date: 20190424
  Transmission Date: 20190711
  Serious: Yes (Other)
  Sender: FDA-Public Use
  Company Number: US-PFIZER INC-2019155460

PATIENT
  Age: 77 Year
  Sex: Male

DRUGS (2)
  1. LIDOCAINE HCL [Suspect]
     Active Substance: LIDOCAINE HYDROCHLORIDE
     Indication: LOCAL ANAESTHESIA
     Dosage: UNK (EPIDURAL STEROID INJECTION OF L5-S1)
     Route: 008
  2. KENALOG ORABASE [Suspect]
     Active Substance: TRIAMCINOLONE ACETONIDE
     Indication: INDUCTION OF ANAESTHESIA
     Dosage: UNK (EPIDURAL STEROID INJECTION OF L5-S1)
     Route: 008

REACTIONS (1)
  - Cauda equina syndrome [Recovered/Resolved]
